FAERS Safety Report 6018169-4 (Version None)
Quarter: 2008Q4

REPORT INFORMATION
  Report Type: 
  Country: None (occurrence: None)
  Receive Date: 20081223
  Receipt Date: 20081212
  Transmission Date: 20090506
  Serious: Yes (Hospitalization)
  Sender: FDA-Public Use
  Company Number: FR-AVENTIS-200814363FR

PATIENT
  Age: 72 Year
  Sex: Male

DRUGS (22)
  1. IMOVANE [Suspect]
     Indication: DRUG USE FOR UNKNOWN INDICATION
     Route: 048
     Dates: start: 20081010, end: 20081113
  2. LASIX [Suspect]
     Indication: DRUG USE FOR UNKNOWN INDICATION
     Route: 048
     Dates: start: 20080904, end: 20081027
  3. LASIX [Suspect]
     Route: 048
     Dates: start: 20081101
  4. OFLOCET                            /00731801/ [Suspect]
     Indication: DRUG USE FOR UNKNOWN INDICATION
     Route: 048
     Dates: start: 20081015, end: 20081015
  5. DI-ANTALVIC                        /00220901/ [Suspect]
     Indication: DRUG USE FOR UNKNOWN INDICATION
     Route: 048
     Dates: start: 20081012, end: 20081014
  6. TAVANIC [Suspect]
     Indication: DRUG USE FOR UNKNOWN INDICATION
     Route: 048
     Dates: start: 20080823, end: 20080828
  7. CRESTOR [Suspect]
     Indication: DRUG USE FOR UNKNOWN INDICATION
     Route: 048
     Dates: start: 20080901, end: 20081113
  8. PREVISCAN                          /00789001/ [Suspect]
     Indication: DRUG USE FOR UNKNOWN INDICATION
     Route: 048
     Dates: start: 20081014, end: 20081113
  9. PREVISCAN                          /00789001/ [Suspect]
     Route: 048
     Dates: start: 20081101
  10. COVERSYL                           /00790701/ [Suspect]
     Indication: DRUG USE FOR UNKNOWN INDICATION
     Route: 048
     Dates: start: 20081019, end: 20081021
  11. COVERSYL                           /00790701/ [Suspect]
     Route: 048
     Dates: start: 20081104, end: 20081113
  12. INSPRA                             /01613601/ [Suspect]
     Indication: DRUG USE FOR UNKNOWN INDICATION
     Route: 048
     Dates: start: 20080904, end: 20081027
  13. CORDARONE [Suspect]
     Indication: DRUG USE FOR UNKNOWN INDICATION
     Route: 048
     Dates: start: 20080904, end: 20081008
  14. ASPEGIC 1000 [Suspect]
     Indication: DRUG USE FOR UNKNOWN INDICATION
     Route: 048
     Dates: start: 20081008, end: 20081014
  15. NEXIUM [Suspect]
     Indication: DRUG USE FOR UNKNOWN INDICATION
     Route: 048
     Dates: start: 20081008, end: 20081014
  16. REVATIO [Suspect]
     Indication: DRUG USE FOR UNKNOWN INDICATION
     Route: 048
     Dates: start: 20081008, end: 20081014
  17. AUGMENTIN '125' [Suspect]
     Indication: DRUG USE FOR UNKNOWN INDICATION
     Route: 048
     Dates: start: 20081009, end: 20081012
  18. DIFFU K [Suspect]
     Indication: DRUG USE FOR UNKNOWN INDICATION
     Route: 048
     Dates: start: 20081009, end: 20081027
  19. DIFFU K [Suspect]
     Route: 048
     Dates: start: 20081101
  20. BACTRIM DS [Suspect]
     Indication: DRUG USE FOR UNKNOWN INDICATION
     Route: 048
     Dates: start: 20081019, end: 20081026
  21. EFFERALGAN                         /00020001/ [Suspect]
     Indication: DRUG USE FOR UNKNOWN INDICATION
     Route: 048
     Dates: start: 20081009, end: 20081012
  22. CALCIPARINE [Suspect]
     Indication: DRUG USE FOR UNKNOWN INDICATION
     Route: 058
     Dates: start: 20080901, end: 20080910

REACTIONS (3)
  - CHOLESTATIC LIVER INJURY [None]
  - HEPATOCELLULAR INJURY [None]
  - JAUNDICE [None]
